FAERS Safety Report 16117394 (Version 1)
Quarter: 2019Q2

REPORT INFORMATION
  Report Type: Spontaneous
  Country: US (occurrence: US)
  Receive Date: 20190325
  Receipt Date: 20190325
  Transmission Date: 20190711
  Serious: No
  Sender: FDA-Public Use
  Company Number: None

PATIENT
  Age: 57 Year
  Sex: Female
  Weight: 76.5 kg

DRUGS (1)
  1. MYRBETRIQ [Suspect]
     Active Substance: MIRABEGRON
     Indication: HYPERTONIC BLADDER
     Dates: start: 20190223, end: 20190323

REACTIONS (7)
  - Dysphagia [None]
  - Musculoskeletal stiffness [None]
  - Joint stiffness [None]
  - Back pain [None]
  - Dry mouth [None]
  - Spinal pain [None]
  - Throat tightness [None]

NARRATIVE: CASE EVENT DATE: 20190323
